FAERS Safety Report 7319689-2 (Version None)
Quarter: 2011Q1

REPORT INFORMATION
  Report Type: 
  Country: None (occurrence: None)
  Receive Date: 20110228
  Receipt Date: 20101221
  Transmission Date: 20110831
  Serious: No
  Sender: FDA-Public Use
  Company Number: A0873349A

PATIENT
  Age: 43 Year
  Sex: Male
  Weight: 113.6 kg

DRUGS (2)
  1. ZOLOFT [Concomitant]
  2. LAMICTAL [Suspect]
     Indication: BIPOLAR DISORDER

REACTIONS (3)
  - MIGRAINE [None]
  - HERNIA [None]
  - SCROTAL SWELLING [None]
